FAERS Safety Report 13652825 (Version 1)
Quarter: 2017Q2

REPORT INFORMATION
  Report Type: Spontaneous
  Country: US (occurrence: US)
  Receive Date: 20170614
  Receipt Date: 20170614
  Transmission Date: 20170830
  Serious: Yes (Hospitalization)
  Sender: FDA-Public Use
  Company Number: US-ROCHE-1170992

PATIENT
  Sex: Female

DRUGS (1)
  1. XELODA [Suspect]
     Active Substance: CAPECITABINE
     Indication: BREAST CANCER
     Route: 065
     Dates: end: 20121212

REACTIONS (6)
  - Stomatitis [Unknown]
  - Pharyngeal ulceration [Unknown]
  - Hypotension [Unknown]
  - Heart rate decreased [Unknown]
  - Dyspnoea [Unknown]
  - Chest pain [Unknown]
